FAERS Safety Report 16558702 (Version 1)
Quarter: 2019Q3

REPORT INFORMATION
  Report Type: Spontaneous
  Country: US (occurrence: US)
  Receive Date: 20190711
  Receipt Date: 20190711
  Transmission Date: 20191004
  Serious: No
  Sender: FDA-Public Use
  Company Number: US-JNJFOC-20190709009

PATIENT
  Sex: Male
  Weight: 72.64 kg

DRUGS (3)
  1. KETOCONAZOLE. [Suspect]
     Active Substance: KETOCONAZOLE
     Indication: FUNGAL INFECTION
  2. KETOCONAZOLE. [Suspect]
     Active Substance: KETOCONAZOLE
     Indication: DRY SKIN
     Route: 061
     Dates: start: 2018
  3. KETOCONAZOLE. [Suspect]
     Active Substance: KETOCONAZOLE
     Indication: HAIR COLOUR CHANGES

REACTIONS (10)
  - Erythema [Unknown]
  - Wrong technique in product usage process [Unknown]
  - Dry skin [Unknown]
  - Pruritus [Unknown]
  - Acne [Not Recovered/Not Resolved]
  - Adverse event [Unknown]
  - Skin disorder [Not Recovered/Not Resolved]
  - Application site swelling [Not Recovered/Not Resolved]
  - Skin exfoliation [Unknown]
  - Swelling [Unknown]

NARRATIVE: CASE EVENT DATE: 2019
